FAERS Safety Report 8598804-7 (Version None)
Quarter: 2012Q3

REPORT INFORMATION
  Report Type: 
  Country: None (occurrence: None)
  Receive Date: 20120816
  Receipt Date: 20120815
  Transmission Date: 20120928
  Serious: Yes (Hospitalization)
  Sender: FDA-Public Use
  Company Number: US-GLAXOSMITHKLINE-A0983808A

PATIENT
  Age: 66 Year
  Sex: Female

DRUGS (5)
  1. PAZOPANIB [Suspect]
     Indication: ANGIOSARCOMA
     Route: 048
     Dates: end: 20120607
  2. DACARBAZINE [Suspect]
     Indication: ANGIOSARCOMA
  3. DEXRAZOXANE HYDROCHLORIDE [Suspect]
     Indication: ANGIOSARCOMA
  4. OXYGEN [Concomitant]
  5. ADRIAMYCIN PFS [Suspect]
     Indication: ANGIOSARCOMA

REACTIONS (4)
  - THROMBOCYTOPENIA [None]
  - NEUTROPENIA [None]
  - PANCYTOPENIA [None]
  - ANAEMIA [None]
